FAERS Safety Report 4809075-9 (Version None)
Quarter: 2005Q4

REPORT INFORMATION
  Report Type: 
  Country: None (occurrence: None)
  Receive Date: 20051021
  Receipt Date: 20050428
  Transmission Date: 20060501
  Serious: No
  Sender: FDA-Public Use
  Company Number: AU_050508540

PATIENT
  Age: 80 Year
  Sex: Female

DRUGS (2)
  1. ZYPREXA [Suspect]
     Indication: AGITATION
     Dosage: 10 MG/1
     Dates: start: 20050427, end: 20050427
  2. RISPERDAL CONSTA [Concomitant]

REACTIONS (1)
  - NEUTROPENIA [None]
